FAERS Safety Report 12980090 (Version 2)
Quarter: 2017Q3

REPORT INFORMATION
  Report Type: Report from Study
  Country: US (occurrence: US)
  Receive Date: 20161128
  Receipt Date: 20170912
  Transmission Date: 20171127
  Serious: Yes (Other)
  Sender: FDA-Public Use
  Company Number: PHEH2016US030905

PATIENT
  Sex: Male

DRUGS (2)
  1. PREDNISON [Concomitant]
     Active Substance: PREDNISONE
     Indication: PRODUCT USED FOR UNKNOWN INDICATION
     Route: 065
  2. ILARIS [Suspect]
     Active Substance: CANAKINUMAB
     Indication: PRODUCT USED FOR UNKNOWN INDICATION
     Route: 065

REACTIONS (12)
  - Eye pain [Unknown]
  - Dyskinesia [Unknown]
  - Pain [Unknown]
  - Tic [Unknown]
  - Arthritis [Unknown]
  - Asthenia [Unknown]
  - Headache [Unknown]
  - Breakthrough pain [Unknown]
  - Arthralgia [Unknown]
  - Streptococcal infection [Unknown]
  - Tourette^s disorder [Unknown]
  - Mydriasis [Unknown]
